FAERS Safety Report 16192181 (Version 2)
Quarter: 2019Q2

REPORT INFORMATION
  Report Type: Spontaneous
  Country: US (occurrence: US)
  Receive Date: 20190412
  Receipt Date: 20190605
  Transmission Date: 20190711
  Serious: No
  Sender: FDA-Public Use
  Company Number: US-BRISTOL-MYERS SQUIBB COMPANY-BMS-2019-035829

PATIENT
  Sex: Female
  Weight: 86.18 kg

DRUGS (14)
  1. METOPROLOL TARTRATE. [Concomitant]
     Active Substance: METOPROLOL TARTRATE
     Indication: LUNG TRANSPLANT
     Dosage: 1 DOSAGE FORM, BID
     Route: 065
     Dates: start: 20181216
  2. PREDNISONE. [Concomitant]
     Active Substance: PREDNISONE
     Indication: LUNG TRANSPLANT
     Dosage: 2 TAB, QD
     Route: 065
     Dates: start: 20181216
  3. PROGRAF [Concomitant]
     Active Substance: TACROLIMUS\TACROLIMUS ANHYDROUS
     Indication: LUNG TRANSPLANT
     Dosage: 1 DOSAGE FORM
     Route: 065
     Dates: start: 20181216
  4. BABY ASPIRIN [Suspect]
     Active Substance: ASPIRIN
     Indication: PRODUCT USED FOR UNKNOWN INDICATION
     Dosage: 81 MILLIGRAM, QD
     Route: 065
     Dates: start: 20181218
  5. SEPTRA [Concomitant]
     Active Substance: SULFAMETHOXAZOLE\TRIMETHOPRIM
     Indication: LUNG TRANSPLANT
     Dosage: 1 TAB
     Route: 065
     Dates: start: 20181216
  6. FERROUS SULFATE. [Concomitant]
     Active Substance: FERROUS SULFATE
     Indication: MINERAL SUPPLEMENTATION
     Dosage: 325 MILLIGRAM, QD
     Route: 065
     Dates: start: 20181216
  7. ELIQUIS [Suspect]
     Active Substance: APIXABAN
     Indication: THROMBOSIS PROPHYLAXIS
     Dosage: 5 MILLIGRAM, Q12H
     Route: 065
     Dates: start: 20181218
  8. VFEND [Concomitant]
     Active Substance: VORICONAZOLE
     Indication: LUNG TRANSPLANT
     Dosage: 1 DOSAGE FORM, BID
     Route: 065
     Dates: start: 20181216
  9. NYSTATIN. [Concomitant]
     Active Substance: NYSTATIN
     Indication: LUNG TRANSPLANT
     Dosage: 5 MILLILITER, BID
     Route: 065
     Dates: start: 20181216
  10. ZITHROMAX [Concomitant]
     Active Substance: AZITHROMYCIN DIHYDRATE
     Indication: LUNG TRANSPLANT
     Dosage: 250 MILLIGRAM
     Route: 065
  11. CELLCEPT [Concomitant]
     Active Substance: MYCOPHENOLATE MOFETIL\MYCOPHENOLATE MOFETIL HYDROCHLORIDE
     Indication: LUNG TRANSPLANT
     Dosage: 1 DOSAGE FORM, BID
     Route: 065
     Dates: start: 20181216
  12. CRESTOR [Concomitant]
     Active Substance: ROSUVASTATIN CALCIUM
     Indication: BLOOD CHOLESTEROL
     Dosage: 20 MILLIGRAM, QD
     Route: 065
     Dates: start: 20181216
  13. CRESTOR [Concomitant]
     Active Substance: ROSUVASTATIN CALCIUM
     Indication: TRANSPLANT REJECTION
     Route: 065
  14. MAGNESIUM OXIDE. [Concomitant]
     Active Substance: MAGNESIUM OXIDE
     Indication: PRODUCT USED FOR UNKNOWN INDICATION
     Dosage: 1 DOSAGE FORM, TID
     Route: 065
     Dates: start: 20181216

REACTIONS (1)
  - No adverse event [Unknown]
